FAERS Safety Report 5483296-7 (Version None)
Quarter: 2007Q4

REPORT INFORMATION
  Report Type: 
  Country: None (occurrence: None)
  Receive Date: 20071012
  Receipt Date: 20071003
  Transmission Date: 20080405
  Serious: Yes (Other)
  Sender: FDA-Public Use
  Company Number: PHFR2005IE02220

PATIENT
  Age: 31 Year
  Sex: Female

DRUGS (8)
  1. CLOZARIL [Suspect]
     Indication: SCHIZOPHRENIA
     Dosage: UNK, UNK
     Route: 048
     Dates: start: 20041118
  2. CLOZARIL [Suspect]
     Dosage: 75 MG/DAY
     Route: 048
     Dates: start: 20040601
  3. CLOZARIL [Suspect]
     Dosage: 500MG / DAY
     Route: 048
  4. CLOZARIL [Suspect]
     Dosage: 400MG / DAY
     Route: 048
  5. SEROQUEL [Concomitant]
     Indication: DEPRESSION
     Dosage: 100 MG/DAY
     Route: 048
     Dates: start: 20041112
  6. ANAFRANIL [Concomitant]
     Indication: DEPRESSION
     Dosage: 50 MG/DAY
     Route: 048
     Dates: start: 20041112
  7. VALPROATE SODIUM [Concomitant]
     Indication: CONVULSION
     Route: 065
  8. CLOMIPRAMINE HCL [Concomitant]
     Route: 065

REACTIONS (12)
  - ALANINE AMINOTRANSFERASE INCREASED [None]
  - ANTIPSYCHOTIC DRUG LEVEL INCREASED [None]
  - BLOOD ALKALINE PHOSPHATASE INCREASED [None]
  - BLOOD GLUCOSE INCREASED [None]
  - DIABETES MELLITUS [None]
  - DISEASE PROGRESSION [None]
  - GAMMA-GLUTAMYLTRANSFERASE INCREASED [None]
  - HAEMOGLOBIN DECREASED [None]
  - IRON DEFICIENCY ANAEMIA [None]
  - LIVER FUNCTION TEST ABNORMAL [None]
  - OBESITY [None]
  - TACHYCARDIA [None]
